FAERS Safety Report 5698708-3 (Version None)
Quarter: 2008Q2

REPORT INFORMATION
  Report Type: 
  Country: None (occurrence: None)
  Receive Date: 20080408
  Receipt Date: 20070313
  Transmission Date: 20081010
  Serious: No
  Sender: FDA-Public Use
  Company Number: US-BAYER-US-2007-009085

PATIENT
  Age: 64 Year
  Sex: Female
  Weight: 53 kg

DRUGS (4)
  1. CLIMARA [Suspect]
     Indication: PROPHYLAXIS
     Route: 062
  2. PROMETRIUM [Concomitant]
     Route: 048
  3. PREVACID [Concomitant]
     Route: 048
  4. FOSAMAX [Concomitant]
     Route: 048

REACTIONS (1)
  - APPLICATION SITE RASH [None]
